FAERS Safety Report 17218600 (Version 1)
Quarter: 2019Q4

REPORT INFORMATION
  Report Type: Spontaneous
  Country: US (occurrence: US)
  Receive Date: 20191231
  Receipt Date: 20191231
  Transmission Date: 20200122
  Serious: Yes (Death, Hospitalization)
  Sender: FDA-Public Use
  Company Number: US-ACTELION-A-CH2019-199720

PATIENT
  Age: 62 Year
  Sex: Female

DRUGS (8)
  1. FUROSEMIDE. [Concomitant]
     Active Substance: FUROSEMIDE
  2. OXYGEN. [Concomitant]
     Active Substance: OXYGEN
     Dosage: 6 L, QD
  3. VELETRI [Suspect]
     Active Substance: EPOPROSTENOL
     Dosage: UNK
     Route: 042
  4. DIGOXIN. [Concomitant]
     Active Substance: DIGOXIN
  5. VELETRI [Suspect]
     Active Substance: EPOPROSTENOL
     Indication: PULMONARY ARTERIAL HYPERTENSION
     Dosage: 133.7 NG/KG, PER MIN
     Route: 042
     Dates: start: 2012
  6. TRACLEER [Suspect]
     Active Substance: BOSENTAN
     Indication: PULMONARY ARTERIAL HYPERTENSION
     Dosage: UNK
     Route: 048
     Dates: start: 2012
  7. SILDENAFIL. [Concomitant]
     Active Substance: SILDENAFIL
     Dosage: UNK
     Dates: start: 2012
  8. WARFARIN [Concomitant]
     Active Substance: WARFARIN

REACTIONS (12)
  - Oxygen saturation decreased [Unknown]
  - Condition aggravated [Unknown]
  - Bronchial obstruction [Fatal]
  - Oedema peripheral [Unknown]
  - Blood pressure decreased [Unknown]
  - Pericardial effusion [Unknown]
  - Respiratory failure [Unknown]
  - Dyspnoea [Unknown]
  - Hypoxia [Unknown]
  - Right ventricular failure [Fatal]
  - Haemodynamic instability [Unknown]
  - Pleural effusion [Unknown]
